FAERS Safety Report 15709467 (Version 1)
Quarter: 2018Q4

REPORT INFORMATION
  Report Type: Other
  Country: ES (occurrence: ES)
  Receive Date: 20181211
  Receipt Date: 20181211
  Transmission Date: 20190205
  Serious: Yes (Hospitalization, Other)
  Sender: FDA-Public Use
  Company Number: ES-APOTEX-2018AP026467

PATIENT
  Age: 41 Year
  Sex: Male
  Weight: 148 kg

DRUGS (6)
  1. VANCOMICINA                        /00314401/ [Suspect]
     Active Substance: VANCOMYCIN
     Indication: BACTERAEMIA
     Dosage: 2 GR, 1 VEZ AL DIA
     Route: 042
     Dates: start: 20170818, end: 20170830
  2. METOCLOPRAMIDA                     /00041901/ [Suspect]
     Active Substance: METOCLOPRAMIDE
     Indication: NAUSEA
     Dosage: 30 MG, 1 VEZ AL DIA
     Route: 042
     Dates: start: 20170730, end: 20170831
  3. RANITIDINE. [Suspect]
     Active Substance: RANITIDINE
     Indication: PRODUCT USED FOR UNKNOWN INDICATION
     Dosage: 100 MG, 1 VEZ AL D?A
     Route: 048
     Dates: start: 20170811, end: 20170905
  4. CLOXACILINA                        /00012001/ [Suspect]
     Active Substance: CLOXACILLIN
     Indication: BACTERAEMIA
     Dosage: 12 GR, 1 VEZ AL D?A
     Route: 042
     Dates: start: 20170817, end: 20170901
  5. PANTOPRAZOL                        /01263201/ [Suspect]
     Active Substance: PANTOPRAZOLE
     Indication: PRODUCT USED FOR UNKNOWN INDICATION
     Dosage: 80 MG, 1 VEZ AL D?A
     Route: 042
     Dates: start: 20170731, end: 20170901
  6. ONDANSETRON [Suspect]
     Active Substance: ONDANSETRON
     Indication: PRODUCT USED FOR UNKNOWN INDICATION
     Dosage: 24 MG, 1 VEZ AL D?A
     Route: 042
     Dates: start: 20170731, end: 20170905

REACTIONS (1)
  - Drug reaction with eosinophilia and systemic symptoms [Recovered/Resolved]

NARRATIVE: CASE EVENT DATE: 20170902
